FAERS Safety Report 15956463 (Version 1)
Quarter: 2019Q1

REPORT INFORMATION
  Report Type: Spontaneous
  Country: IT (occurrence: IT)
  Receive Date: 20190213
  Receipt Date: 20190213
  Transmission Date: 20190417
  Serious: Yes (Hospitalization)
  Sender: FDA-Public Use
  Company Number: IT-JNJFOC-20190213914

PATIENT
  Age: 89 Year
  Sex: Male

DRUGS (3)
  1. CARDIOASPIRIN [Suspect]
     Active Substance: ASPIRIN
     Indication: PLATELET AGGREGATION INHIBITION
     Route: 048
     Dates: start: 20170101, end: 20190120
  2. CARDURA [Concomitant]
     Active Substance: DOXAZOSIN MESYLATE
     Route: 065
  3. XARELTO [Suspect]
     Active Substance: RIVAROXABAN
     Indication: ATRIAL FIBRILLATION
     Route: 048
     Dates: start: 20180901, end: 20190120

REACTIONS (2)
  - Melaena [Unknown]
  - Gastritis erosive [Unknown]

NARRATIVE: CASE EVENT DATE: 20190120
